FAERS Safety Report 18357673 (Version 1)
Quarter: 2020Q4

REPORT INFORMATION
  Report Type: Spontaneous
  Country: SI (occurrence: SI)
  Receive Date: 20201007
  Receipt Date: 20201007
  Transmission Date: 20210114
  Serious: Yes (Hospitalization)
  Sender: FDA-Public Use
  Company Number: SI-NOVOPROD-756507

PATIENT
  Age: 82 Year
  Sex: Female
  Weight: 111 kg

DRUGS (2)
  1. NOVOMIX 30 [Suspect]
     Active Substance: INSULIN ASPART
     Indication: TYPE 2 DIABETES MELLITUS
     Dosage: 110 UNITS
     Route: 065
  2. NOVOMIX 50 [Suspect]
     Active Substance: INSULIN ASPART
     Indication: TYPE 2 DIABETES MELLITUS
     Dosage: 110 UNITS
     Route: 065

REACTIONS (2)
  - Cardiac failure congestive [Unknown]
  - Product administration error [Unknown]

NARRATIVE: CASE EVENT DATE: 201901
